FAERS Safety Report 8434732-5 (Version None)
Quarter: 2012Q2

REPORT INFORMATION
  Report Type: 
  Country: None (occurrence: None)
  Receive Date: 20120614
  Receipt Date: 20120612
  Transmission Date: 20120825
  Serious: Yes (Death, Other)
  Sender: FDA-Public Use
  Company Number: US-ELI_LILLY_AND_COMPANY-US201205005536

PATIENT
  Sex: Male
  Weight: 71.247 kg

DRUGS (1)
  1. GEMZAR [Suspect]
     Dosage: 1845 MG, UNK
     Route: 042
     Dates: start: 20110526

REACTIONS (2)
  - RESPIRATORY FAILURE [None]
  - SEPSIS [None]
